FAERS Safety Report 6724123-7 (Version None)
Quarter: 2010Q2

REPORT INFORMATION
  Report Type: 
  Country: None (occurrence: None)
  Receive Date: 20100513
  Receipt Date: 20100505
  Transmission Date: 20101027
  Serious: Yes (Hospitalization, Other)
  Sender: FDA-Public Use
  Company Number: SK-TEVA-174191ISR

PATIENT
  Sex: Female
  Weight: 80 kg

DRUGS (11)
  1. FLUOROURACIL [Suspect]
     Indication: COLORECTAL CANCER
     Route: 042
     Dates: start: 20080312, end: 20080619
  2. SUNITINIB (BLINDED THERAPY) [Suspect]
     Indication: COLORECTAL CANCER
     Route: 048
     Dates: start: 20080312, end: 20080619
  3. CALCIUM FOLINATE [Suspect]
     Indication: COLORECTAL CANCER
     Route: 042
     Dates: start: 20080312, end: 20080618
  4. IRINOTECAN HCL [Suspect]
     Indication: COLORECTAL CANCER
     Route: 042
     Dates: start: 20080312, end: 20080618
  5. MAGNESIUM [Concomitant]
     Dates: start: 20080403, end: 20080405
  6. BISOPROLOL [Concomitant]
     Dates: start: 20070913
  7. ESSENTIALE                         /00390501/ [Concomitant]
     Dates: start: 20080227
  8. RANITIDINE [Concomitant]
     Dates: start: 20080304
  9. PEFLOXACIN [Concomitant]
     Dates: start: 20080310, end: 20080317
  10. ONDANSETRON [Concomitant]
     Dates: start: 20080312
  11. LOPERAMIDE [Concomitant]
     Dates: start: 20080327

REACTIONS (1)
  - ATRIAL FIBRILLATION [None]
